FAERS Safety Report 12177435 (Version 1)
Quarter: 2016Q1

REPORT INFORMATION
  Report Type: Spontaneous
  Country: US (occurrence: US)
  Receive Date: 20160314
  Receipt Date: 20160314
  Transmission Date: 20160526
  Serious: Yes (Hospitalization)
  Sender: FDA-Public Use
  Company Number: US-PFIZER INC-2016148522

PATIENT
  Age: 58 Year
  Sex: Male
  Weight: 90 kg

DRUGS (1)
  1. RAPAMUNE [Suspect]
     Active Substance: SIROLIMUS
     Indication: PROPHYLAXIS AGAINST TRANSPLANT REJECTION
     Dosage: UNK, 1X/DAY
     Route: 048

REACTIONS (5)
  - Chronic obstructive pulmonary disease [Unknown]
  - Cardiac failure congestive [Unknown]
  - Chest pain [Unknown]
  - Pulmonary oedema [Unknown]
  - Product use issue [Unknown]
